FAERS Safety Report 8594930-7 (Version None)
Quarter: 2012Q2

REPORT INFORMATION
  Report Type: 
  Country: None (occurrence: None)
  Receive Date: 20120423
  Receipt Date: 20100526
  Transmission Date: 20120825
  Serious: Yes (Hospitalization, Other)
  Sender: FDA-Public Use
  Company Number: PHHY2010US34136

PATIENT
  Age: 78 Year
  Sex: Female
  Weight: 77.4 kg

DRUGS (18)
  1. EXJADE [Suspect]
     Indication: AMYLOIDOSIS
     Dosage: 1500 MG, DAILY, ORAL
     Route: 048
     Dates: start: 20090714, end: 20100301
  2. EXJADE [Suspect]
     Indication: IRON OVERLOAD
     Dosage: 1500 MG, DAILY, ORAL
     Route: 048
     Dates: start: 20090714, end: 20100301
  3. MULTIVITAMINS (ASCORBIC ACID, ERGOCALCIFEROL, FOLIC ACID, NICOTINAMIDE [Concomitant]
  4. SODIUM BICARBONATE [Concomitant]
  5. HYDRALAZINE HCL [Concomitant]
  6. LASIX [Concomitant]
  7. DIGOXIN [Concomitant]
  8. NIFEDIAC (NIFEDIPINE) [Concomitant]
  9. CRESTOR [Concomitant]
  10. ISOSORBIDE [Concomitant]
  11. ARESTIN (MINOCYCLINE HYDROCHLORIDE) [Concomitant]
  12. ASPIRIN [Concomitant]
  13. LISINOPRIL [Concomitant]
  14. CALCIUM [Concomitant]
  15. ATACAND [Concomitant]
  16. SPIRONOLACTONE [Concomitant]
  17. CARVEDILOL [Concomitant]
  18. ADALAT [Concomitant]

REACTIONS (7)
  - RENAL FAILURE [None]
  - SERUM FERRITIN INCREASED [None]
  - CONDITION AGGRAVATED [None]
  - BLOOD CREATININE INCREASED [None]
  - BLOOD UREA INCREASED [None]
  - RENAL FAILURE CHRONIC [None]
  - RENAL FAILURE ACUTE [None]
